FAERS Safety Report 10722503 (Version 2)
Quarter: 2015Q1

REPORT INFORMATION
  Report Type: Spontaneous
  Country: IT (occurrence: IT)
  Receive Date: 20150119
  Receipt Date: 20150121
  Transmission Date: 20150721
  Serious: No
  Sender: FDA-Public Use
  Company Number: PHHY2015IT003991

PATIENT
  Age: 85 Year
  Sex: Female

DRUGS (8)
  1. BROMAZEPAM [Concomitant]
     Active Substance: BROMAZEPAM
     Indication: PRODUCT USED FOR UNKNOWN INDICATION
     Route: 048
  2. LEVOPRAID [Concomitant]
     Active Substance: SULPIRIDE
     Indication: PRODUCT USED FOR UNKNOWN INDICATION
     Route: 048
  3. TORVAST [Concomitant]
     Active Substance: ATORVASTATIN
     Indication: PRODUCT USED FOR UNKNOWN INDICATION
     Route: 048
  4. AMOXICILLIN. [Interacting]
     Active Substance: AMOXICILLIN
     Indication: PRODUCT USED FOR UNKNOWN INDICATION
     Dosage: 2 G, QD
     Route: 048
     Dates: start: 20140830
  5. FUROSEMIDE. [Concomitant]
     Active Substance: FUROSEMIDE
     Indication: PRODUCT USED FOR UNKNOWN INDICATION
     Route: 048
  6. SINTROM [Suspect]
     Active Substance: ACENOCOUMAROL
     Indication: DEEP VEIN THROMBOSIS
     Dosage: 6 MG, WEEKLY
     Route: 048
     Dates: start: 20020617
  7. SINTROM [Interacting]
     Active Substance: ACENOCOUMAROL
     Dosage: REDUCED DOSE
     Route: 048
  8. TRIATEC [Concomitant]
     Active Substance: RAMIPRIL
     Indication: PRODUCT USED FOR UNKNOWN INDICATION
     Route: 048

REACTIONS (1)
  - International normalised ratio increased [Recovered/Resolved]

NARRATIVE: CASE EVENT DATE: 20140904
